FAERS Safety Report 24778394 (Version 2)
Quarter: 2025Q2

REPORT INFORMATION
  Report Type: Spontaneous
  Country: US (occurrence: US)
  Receive Date: 20241226
  Receipt Date: 20250606
  Transmission Date: 20250716
  Serious: No
  Sender: SANOFI AVENTIS
  Company Number: US-SA-2024SA378854

PATIENT
  Sex: Male

DRUGS (14)
  1. DUPIXENT [Suspect]
     Active Substance: DUPILUMAB
     Indication: Plasma cell myeloma
     Dosage: 300 MG, QOW
     Route: 058
     Dates: start: 20240719
  2. DUPIXENT [Suspect]
     Active Substance: DUPILUMAB
     Indication: Dermatitis atopic
  3. REVLIMID [Suspect]
     Active Substance: LENALIDOMIDE
     Route: 065
  4. VELCADE [Suspect]
     Active Substance: BORTEZOMIB
     Route: 065
  5. ACETAMINOPHEN [Concomitant]
     Active Substance: ACETAMINOPHEN
     Route: 065
  6. ACYCLOVIR [Concomitant]
     Active Substance: ACYCLOVIR
  7. ASPIRIN [Concomitant]
     Active Substance: ASPIRIN
  8. DARZALEX [Concomitant]
     Active Substance: DARATUMUMAB
  9. LENALIDOMIDE [Concomitant]
     Active Substance: LENALIDOMIDE
  10. LEVOTHYROXINE [Concomitant]
     Active Substance: LEVOTHYROXINE
  11. VITAMINS [Concomitant]
     Active Substance: VITAMINS
  12. SULFAMETHOXAZOLE\TRIMETHOPRIM [Concomitant]
     Active Substance: SULFAMETHOXAZOLE\TRIMETHOPRIM
  13. XGEVA [Concomitant]
     Active Substance: DENOSUMAB
  14. METHYLPREDNISOLONE [Concomitant]
     Active Substance: METHYLPREDNISOLONE

REACTIONS (4)
  - Hordeolum [Unknown]
  - Back pain [Not Recovered/Not Resolved]
  - Rash [Recovering/Resolving]
  - Product use in unapproved indication [Unknown]
